FAERS Safety Report 12247608 (Version 2)
Quarter: 2016Q2

REPORT INFORMATION
  Report Type: Spontaneous
  Country: SE (occurrence: SE)
  Receive Date: 20160407
  Receipt Date: 20160423
  Transmission Date: 20160815
  Serious: Yes (Hospitalization)
  Sender: FDA-Public Use
  Company Number: SE-AMGEN-SWESP2016034971

PATIENT
  Age: 69 Year
  Sex: Female

DRUGS (2)
  1. CANDESARTAN [Concomitant]
     Active Substance: CANDESARTAN
     Dosage: 4 MG, UNK
     Dates: start: 201412
  2. ENBREL [Suspect]
     Active Substance: ETANERCEPT
     Indication: RHEUMATOID ARTHRITIS
     Dosage: 50 MG, WEEKLY
     Route: 065
     Dates: start: 20160218

REACTIONS (4)
  - Injection site erythema [Recovering/Resolving]
  - Injection site reaction [Recovered/Resolved]
  - Muscle spasms [Recovering/Resolving]
  - Flatulence [Recovered/Resolved]

NARRATIVE: CASE EVENT DATE: 2016
